FAERS Safety Report 4487264-3 (Version None)
Quarter: 2004Q4

REPORT INFORMATION
  Report Type: 
  Country: None (occurrence: None)
  Receive Date: 20041022
  Receipt Date: 20041013
  Transmission Date: 20050328
  Serious: No
  Sender: FDA-Public Use
  Company Number: K200401570

PATIENT
  Sex: Female

DRUGS (7)
  1. FLORINEF [Suspect]
     Indication: ADRENOCORTICAL INSUFFICIENCY CHRONIC
     Dosage: QD, ORAL
     Route: 048
     Dates: start: 19880201
  2. NEOVLETTA (ETHINYLESTRADIOL, LEVONORGESTREL) [Concomitant]
  3. ZOLPIDEM TARTRATE [Concomitant]
  4. PROPAVAN (PROPIOMAZINE MALEATE) [Concomitant]
  5. STESOLID (DIAZEPAM) [Concomitant]
  6. REMERON [Concomitant]
  7. ^CORTAL^         (CORTISONE ACETATE) [Concomitant]

REACTIONS (3)
  - BREAST CANCER FEMALE [None]
  - COSTOCHONDRITIS [None]
  - NEOPLASM [None]
